FAERS Safety Report 9659924 (Version 2)
Quarter: 2013Q4

REPORT INFORMATION
  Report Type: Spontaneous
  Country: FR (occurrence: FR)
  Receive Date: 20131031
  Receipt Date: 20131106
  Transmission Date: 20140711
  Serious: Yes (Death, Other)
  Sender: FDA-Public Use
  Company Number: FR-JNJFOC-20131018221

PATIENT
  Age: 70 Year
  Sex: Male
  Weight: 106 kg

DRUGS (8)
  1. XARELTO [Suspect]
     Indication: CEREBROVASCULAR ACCIDENT PROPHYLAXIS
     Route: 048
     Dates: start: 2012
  2. XARELTO [Suspect]
     Indication: ATRIAL FIBRILLATION
     Route: 048
     Dates: start: 2012
  3. MEDIATENSYL [Concomitant]
     Route: 065
  4. AMIODARONE [Concomitant]
     Route: 065
  5. METFORMINE [Concomitant]
     Route: 065
  6. AMLOR [Concomitant]
     Route: 065
  7. COAPROVEL [Concomitant]
     Route: 065
  8. CARDENSIEL [Concomitant]
     Route: 065

REACTIONS (2)
  - Acute pulmonary oedema [Fatal]
  - Infarction [Fatal]
